FAERS Safety Report 8417101-3 (Version None)
Quarter: 2012Q2

REPORT INFORMATION
  Report Type: 
  Country: None (occurrence: None)
  Receive Date: 20120606
  Receipt Date: 20120530
  Transmission Date: 20120825
  Serious: Yes (Hospitalization)
  Sender: FDA-Public Use
  Company Number: US-BAYER-2012-055068

PATIENT
  Age: 61 Year
  Sex: Female
  Weight: 50 kg

DRUGS (4)
  1. PHILLIPS' MILK OF MAGNESIA LIQUID ORIGINAL [Suspect]
     Dosage: 4 DF, PRN
     Route: 048
     Dates: start: 20101201, end: 20101201
  2. PHILLIPS' LAXATIVE DIETARY SUPPLEMENT [Suspect]
     Dosage: 3 DF, QD
     Route: 048
     Dates: start: 20101201, end: 20101225
  3. VALIUM [Concomitant]
  4. ANALGESICS [Concomitant]

REACTIONS (2)
  - NAUSEA [None]
  - ABDOMINAL PAIN [None]
